FAERS Safety Report 7071055-3 (Version None)
Quarter: 2010Q4

REPORT INFORMATION
  Report Type: 
  Country: None (occurrence: None)
  Receive Date: 20101029
  Receipt Date: 20101020
  Transmission Date: 20110411
  Serious: Yes (Other)
  Sender: FDA-Public Use
  Company Number: US-PFIZER INC-2010134175

PATIENT
  Sex: Male

DRUGS (1)
  1. GEODON [Suspect]
     Indication: SCHIZOPHRENIA
     Dosage: 80 MG, 2X/DAY

REACTIONS (1)
  - SCHIZOPHRENIA [None]
